FAERS Safety Report 23054005 (Version 1)
Quarter: 2023Q4

REPORT INFORMATION
  Report Type: Spontaneous
  Country: ES (occurrence: ES)
  Receive Date: 20231011
  Receipt Date: 20231011
  Transmission Date: 20240110
  Serious: Yes (Other)
  Sender: FDA-Public Use
  Company Number: ES-MLMSERVICE-20230926-4559035-2

PATIENT
  Age: 51 Year
  Sex: Female

DRUGS (6)
  1. CARBOPLATIN [Suspect]
     Active Substance: CARBOPLATIN
     Indication: Ovarian cancer stage III
     Dosage: (AUC5) 21 DAYS 5 CYCLES
     Dates: start: 201801, end: 2018
  2. PACLITAXEL [Suspect]
     Active Substance: PACLITAXEL
     Indication: Ovarian epithelial cancer
     Dosage: 175 MG/M2 EVERY 21 DAYS  5 CYCLES
     Dates: start: 201801, end: 2018
  3. PACLITAXEL [Suspect]
     Active Substance: PACLITAXEL
     Indication: Metastases to peritoneum
     Dosage: 175 MG/M2 EVERY 21 DAYS  5 CYCLES
     Dates: start: 201801, end: 2018
  4. CARBOPLATIN [Suspect]
     Active Substance: CARBOPLATIN
     Indication: Ovarian epithelial cancer
     Dosage: (AUC5) 21 DAYS 5 CYCLES
     Dates: start: 201801, end: 2018
  5. PACLITAXEL [Suspect]
     Active Substance: PACLITAXEL
     Indication: Ovarian cancer stage III
     Dosage: 175 MG/M2 EVERY 21 DAYS  5 CYCLES
     Dates: start: 201801, end: 2018
  6. CARBOPLATIN [Suspect]
     Active Substance: CARBOPLATIN
     Indication: Metastases to peritoneum
     Dosage: (AUC5) 21 DAYS 5 CYCLES
     Dates: start: 201801, end: 2018

REACTIONS (4)
  - Decreased appetite [Unknown]
  - Neurotoxicity [Unknown]
  - Drug hypersensitivity [Unknown]
  - Off label use [Unknown]

NARRATIVE: CASE EVENT DATE: 20180101
